FAERS Safety Report 9934531 (Version 2)
Quarter: 2014Q1

REPORT INFORMATION
  Report Type: Spontaneous
  Country: US (occurrence: US)
  Receive Date: 20140228
  Receipt Date: 20140228
  Transmission Date: 20141002
  Serious: Yes (Hospitalization)
  Sender: FDA-Public Use
  Company Number: US-UCBSA-113161

PATIENT
  Age: 81 Year
  Sex: Male
  Weight: 91.5 kg

DRUGS (1)
  1. KEPPRA [Suspect]
     Indication: CONVULSION
     Dosage: DOSE: 500 MG/5 ML PER PEG TUBE AS A NEBULIZED RESPIRATORY TREATMENT

REACTIONS (5)
  - Hyperglycaemia [Unknown]
  - Renal failure [Unknown]
  - Dehydration [Unknown]
  - Incorrect route of drug administration [Unknown]
  - Wrong drug administered [Unknown]
